FAERS Safety Report 19856325 (Version 2)
Quarter: 2021Q4

REPORT INFORMATION
  Report Type: Spontaneous
  Country: CN (occurrence: CN)
  Receive Date: 20210920
  Receipt Date: 20211018
  Transmission Date: 20220304
  Serious: Yes (Other)
  Sender: FDA-Public Use
  Company Number: CN-LUPIN PHARMACEUTICALS INC.-2021-18255

PATIENT
  Sex: Female
  Weight: 2.89 kg

DRUGS (6)
  1. DICLOFENAC [Suspect]
     Active Substance: DICLOFENAC
     Indication: Pyrexia
     Dosage: UNK (SUPPOSITORY)
     Route: 064
     Dates: start: 20200124
  2. OSELTAMIVIR [Suspect]
     Active Substance: OSELTAMIVIR
     Indication: Severe acute respiratory syndrome
     Dosage: 75 MILLIGRAM, QD
     Route: 064
     Dates: start: 20200125
  3. AZITHROMYCIN ANHYDROUS [Suspect]
     Active Substance: AZITHROMYCIN ANHYDROUS
     Indication: Severe acute respiratory syndrome
     Dosage: UNK
     Route: 064
     Dates: start: 20200125
  4. METHYLPREDNISOLONE [Suspect]
     Active Substance: METHYLPREDNISOLONE
     Indication: Product used for unknown indication
     Dosage: 20 MILLIGRAM, QD
     Route: 064
     Dates: start: 20200129
  5. CEFTAZIDIME [Suspect]
     Active Substance: CEFTAZIDIME
     Indication: Antibiotic prophylaxis
     Dosage: 2 GRAM, QD
     Route: 064
     Dates: start: 20200125
  6. CEFOTIAM [Suspect]
     Active Substance: CEFOTIAM
     Indication: Antibiotic prophylaxis
     Dosage: UNK
     Route: 064
     Dates: start: 20200125

REACTIONS (4)
  - Neonatal pneumonia [Unknown]
  - Lymphopenia [Unknown]
  - Premature baby [Unknown]
  - Foetal exposure during pregnancy [Unknown]
